FAERS Safety Report 8026235-7 (Version None)
Quarter: 2012Q1

REPORT INFORMATION
  Report Type: 
  Country: None (occurrence: None)
  Receive Date: 20120105
  Receipt Date: 20110525
  Transmission Date: 20120608
  Serious: Yes (Hospitalization)
  Sender: FDA-Public Use
  Company Number: US-ABBOTT-11P-163-0708837-00

PATIENT
  Age: 71 Year
  Sex: Female
  Weight: 67.192 kg

DRUGS (5)
  1. SYNTHROID [Suspect]
  2. SYNTHROID [Suspect]
     Indication: THYROIDECTOMY
     Dates: start: 20110205, end: 20110227
  3. SYNTHROID [Suspect]
  4. SYNTHROID [Suspect]
     Indication: HYPOTHYROIDISM
     Dates: start: 20110115, end: 20110204
  5. SYNTHROID [Suspect]
     Indication: THYROIDECTOMY

REACTIONS (6)
  - BLOOD PRESSURE INCREASED [None]
  - FEELING ABNORMAL [None]
  - DECREASED APPETITE [None]
  - WEIGHT DECREASED [None]
  - FEELING JITTERY [None]
  - NAUSEA [None]
